FAERS Safety Report 7757323-8 (Version None)
Quarter: 2011Q3

REPORT INFORMATION
  Report Type: 
  Country: None (occurrence: None)
  Receive Date: 20110916
  Receipt Date: 20110909
  Transmission Date: 20111222
  Serious: Yes (Other)
  Sender: FDA-Public Use
  Company Number: FR-UCBSA-034687

PATIENT
  Sex: Female
  Weight: 70 kg

DRUGS (4)
  1. CIMZIA [Suspect]
     Indication: RHEUMATOID ARTHRITIS
     Route: 058
     Dates: start: 20110523, end: 20110523
  2. BROMAZEPAM [Concomitant]
     Route: 048
  3. METHOTREXATE [Concomitant]
     Route: 058
  4. EFFEXOR [Concomitant]
     Route: 048

REACTIONS (1)
  - ANAPHYLACTOID REACTION [None]
